FAERS Safety Report 6994082-0 (Version None)
Quarter: 2010Q3

REPORT INFORMATION
  Report Type: 
  Country: None (occurrence: None)
  Receive Date: 20100917
  Receipt Date: 20080508
  Transmission Date: 20110219
  Serious: Yes (Other)
  Sender: FDA-Public Use
  Company Number: US-ASTRAZENECA-2006UW24042

PATIENT
  Age: 42 Year
  Sex: Male
  Weight: 88.9 kg

DRUGS (12)
  1. SEROQUEL [Suspect]
     Indication: SLEEP DISORDER
     Dosage: 100 MG - 300 MG
     Route: 048
     Dates: start: 20040707
  2. SEROQUEL [Suspect]
     Route: 048
  3. ZYPREXA [Concomitant]
  4. EFFEXOR [Concomitant]
     Dates: start: 20070601
  5. CARISOPRODOL [Concomitant]
     Dates: start: 20040707
  6. PREDNISONE [Concomitant]
     Dates: start: 20040707
  7. ALPRAZOLAM [Concomitant]
     Dates: start: 20040707
  8. LEXAPRO [Concomitant]
     Dates: start: 20040707
  9. GLYBURIDE [Concomitant]
     Dates: start: 20070601
  10. TRAZODONE HCL [Concomitant]
     Dates: start: 20060601
  11. ATENOLOL [Concomitant]
     Dates: start: 20060601
  12. PLAVIX [Concomitant]
     Dates: start: 20070601

REACTIONS (3)
  - DIABETES MELLITUS [None]
  - SUICIDE ATTEMPT [None]
  - TYPE 2 DIABETES MELLITUS [None]
